FAERS Safety Report 10727777 (Version 2)
Quarter: 2015Q1

REPORT INFORMATION
  Report Type: Report from Study
  Country: KR (occurrence: KR)
  Receive Date: 20150121
  Receipt Date: 20150129
  Transmission Date: 20150721
  Serious: Yes (Hospitalization)
  Sender: FDA-Public Use
  Company Number: KR-GSKJP-KR2014038589AA

PATIENT

DRUGS (23)
  1. ACTONEL [Concomitant]
     Active Substance: RISEDRONATE SODIUM
     Dosage: UNK
     Dates: start: 20140922
  2. LIVACT                             /00847901/ [Concomitant]
     Dosage: UNK
     Dates: start: 20140417, end: 20140916
  3. VESICARE [Concomitant]
     Active Substance: SOLIFENACIN SUCCINATE
     Dosage: UNK
     Dates: start: 20140711
  4. LASIX [Concomitant]
     Active Substance: FUROSEMIDE
     Dosage: UNK
     Dates: start: 20140409
  5. ULCERLMIN [Concomitant]
     Active Substance: SUCRALFATE
     Dosage: UNK
     Dates: start: 20140414
  6. MOTILIDONE [Concomitant]
     Dosage: UNK
     Dates: start: 20141125
  7. RABIET [Concomitant]
     Dosage: UNK
     Dates: start: 20140509, end: 20140915
  8. ALDACTONE [Concomitant]
     Active Substance: SPIRONOLACTONE
     Dosage: UNK
     Dates: start: 20140409
  9. TRIDOL [Concomitant]
     Dosage: UNK
     Dates: start: 20141105, end: 20141108
  10. PHENIRAMIN [Concomitant]
     Dosage: UNK
     Dates: start: 20141107, end: 20141107
  11. MEGACE F [Concomitant]
     Dosage: UNK
     Dates: start: 20141128
  12. RESOLOR [Concomitant]
     Active Substance: PRUCALOPRIDE SUCCINATE
     Dosage: UNK
     Dates: start: 20140509
  13. LACIDOFIL [Concomitant]
     Dosage: UNK
     Dates: start: 20140509, end: 20141124
  14. TENOFOVIR DISOPROXIL FUMARATE [Suspect]
     Active Substance: TENOFOVIR DISOPROXIL FUMARATE
     Dosage: 300 MG, QD
     Route: 048
     Dates: start: 20140412
  15. HARNAL [Concomitant]
     Active Substance: TAMSULOSIN HYDROCHLORIDE
     Dosage: UNK
     Dates: start: 20140711
  16. CIPROCTAN [Concomitant]
     Dosage: UNK
     Dates: start: 20141126, end: 20141202
  17. DUPHALAC [Concomitant]
     Active Substance: LACTULOSE
     Dosage: UNK
     Dates: start: 20140923
  18. SOLETON [Concomitant]
     Active Substance: ZALTOPROFEN
     Dosage: UNK
     Dates: start: 20141105
  19. CYMBALTA [Concomitant]
     Active Substance: DULOXETINE HYDROCHLORIDE
     Dosage: UNK
     Dates: start: 20141106, end: 20141106
  20. TENOFOVIR DISOPROXIL FUMARATE [Suspect]
     Active Substance: TENOFOVIR DISOPROXIL FUMARATE
     Indication: PRODUCT USED FOR UNKNOWN INDICATION
     Dosage: 300 MG, QD
     Route: 048
     Dates: start: 20140412
  21. NEXIUM [Concomitant]
     Active Substance: ESOMEPRAZOLE MAGNESIUM
     Dosage: UNK
     Dates: start: 20140410
  22. MACPERAN [Concomitant]
     Dosage: UNK
     Dates: start: 20141107, end: 20141107
  23. LAMINA-G [Concomitant]
     Dosage: UNK
     Dates: start: 20140409, end: 20141001

REACTIONS (6)
  - Abdominal discomfort [Unknown]
  - Nausea [Unknown]
  - Hypophagia [Unknown]
  - Fibromyalgia [Unknown]
  - Urinary tract infection [Recovered/Resolved]
  - Constipation [Recovered/Resolved]

NARRATIVE: CASE EVENT DATE: 20141125
